FAERS Safety Report 15284241 (Version 2)
Quarter: 2018Q3

REPORT INFORMATION
  Report Type: Report from Study
  Country: US (occurrence: US)
  Receive Date: 20180816
  Receipt Date: 20180817
  Transmission Date: 20181010
  Serious: Yes (Death)
  Sender: FDA-Public Use
  Company Number: US-PFIZER INC-2017306026

PATIENT
  Age: 55 Year
  Sex: Male

DRUGS (3)
  1. SUTENT [Suspect]
     Active Substance: SUNITINIB MALATE
     Indication: RENAL CELL CARCINOMA
     Dosage: 50 MG, CYCLIC (2 WEEKS ON AND 1 WEEK OFF)
     Dates: start: 201706
  2. SUTENT [Suspect]
     Active Substance: SUNITINIB MALATE
     Indication: METASTATIC RENAL CELL CARCINOMA
     Dosage: 50 MG, 1X/DAY
     Route: 048
     Dates: start: 20170616, end: 20170804
  3. SUTENT [Suspect]
     Active Substance: SUNITINIB MALATE
     Dosage: 50 MG, CYCLIC (1 WEEK ON AND 1 WEEK OFF)
     Dates: start: 201708

REACTIONS (22)
  - Death [Fatal]
  - Blister [Recovered/Resolved]
  - Joint swelling [Unknown]
  - Glossodynia [Unknown]
  - Dyspnoea exertional [Unknown]
  - Dysgeusia [Unknown]
  - Constipation [Recovered/Resolved]
  - Pain [Unknown]
  - Thyroid function test abnormal [Unknown]
  - Oral candidiasis [Unknown]
  - Myalgia [Recovering/Resolving]
  - Gingival pain [Unknown]
  - Decreased appetite [Recovered/Resolved]
  - Blood creatinine increased [Unknown]
  - Asthenia [Unknown]
  - Pain in extremity [Recovered/Resolved]
  - Glossitis [Unknown]
  - Weight decreased [Recovering/Resolving]
  - Stomatitis [Unknown]
  - Product use issue [Unknown]
  - Cough [Unknown]
  - Oral pain [Unknown]

NARRATIVE: CASE EVENT DATE: 2017
